FAERS Safety Report 15740935 (Version 1)
Quarter: 2018Q4

REPORT INFORMATION
  Report Type: Spontaneous
  Country: FR (occurrence: FR)
  Receive Date: 20181219
  Receipt Date: 20181219
  Transmission Date: 20190205
  Serious: Yes (Other)
  Sender: FDA-Public Use
  Company Number: FR-JNJFOC-20181215668

PATIENT
  Age: 23 Year
  Sex: Female
  Weight: 62 kg

DRUGS (4)
  1. TRUVADA [Suspect]
     Active Substance: EMTRICITABINE\TENOFOVIR DISOPROXIL FUMARATE
     Indication: HIV INFECTION CDC GROUP I
     Dosage: 200 MG/245 MG
     Route: 048
     Dates: start: 20180917
  2. STRIBILD [Suspect]
     Active Substance: COBICISTAT\ELVITEGRAVIR\EMTRICITABINE\TENOFOVIR DISOPROXIL FUMARATE
     Indication: HIV INFECTION CDC GROUP I
     Dosage: 150 MG/150 MG/200 MG/245 MG
     Route: 048
     Dates: start: 20180502, end: 20180912
  3. NORVIR [Suspect]
     Active Substance: RITONAVIR
     Indication: HIV INFECTION CDC GROUP I
     Dosage: 100MG
     Route: 048
     Dates: start: 20180917
  4. PREZISTA [Suspect]
     Active Substance: DARUNAVIR ETHANOLATE
     Indication: HIV INFECTION CDC GROUP I
     Route: 048
     Dates: start: 20180917

REACTIONS (2)
  - Abortion spontaneous [Recovered/Resolved with Sequelae]
  - Exposure during pregnancy [Recovered/Resolved]

NARRATIVE: CASE EVENT DATE: 20181009
